FAERS Safety Report 4708168-4 (Version None)
Quarter: 2005Q2

REPORT INFORMATION
  Report Type: 
  Country: None (occurrence: None)
  Receive Date: 20050629
  Receipt Date: 20050512
  Transmission Date: 20051028
  Serious: No
  Sender: FDA-Public Use
  Company Number: 05P-163-0300330-00

PATIENT
  Age: 42 Year
  Sex: Female
  Weight: 60.782 kg

DRUGS (3)
  1. HUMIRA [Suspect]
     Indication: RHEUMATOID ARTHRITIS
     Dosage: 40 MG, 1 IN 2 WK, SUBCUTANEOUS
     Route: 058
     Dates: start: 20050201, end: 20050419
  2. METHOTREXATE SODIUM [Concomitant]
  3. PREDNISONE [Concomitant]

REACTIONS (3)
  - FACE OEDEMA [None]
  - FURUNCLE [None]
  - SKIN DEPIGMENTATION [None]
